FAERS Safety Report 4773067-9 (Version None)
Quarter: 2005Q3

REPORT INFORMATION
  Report Type: 
  Country: None (occurrence: None)
  Receive Date: 20050916
  Receipt Date: 20050901
  Transmission Date: 20060218
  Serious: Yes (Hospitalization)
  Sender: FDA-Public Use
  Company Number: US-YAMANOUCHI-YPA20050456

PATIENT
  Age: 75 Year
  Sex: Male

DRUGS (1)
  1. VESICARE [Suspect]
     Indication: POLLAKIURIA
     Dosage: 5 MG QD PO
     Route: 048

REACTIONS (5)
  - BLOOD CREATININE INCREASED [None]
  - FLUID RETENTION [None]
  - HYDRONEPHROSIS [None]
  - URINARY RETENTION [None]
  - WEIGHT INCREASED [None]
